FAERS Safety Report 15466363 (Version 7)
Quarter: 2019Q2

REPORT INFORMATION
  Report Type: Report from Study
  Country: US (occurrence: US)
  Receive Date: 20181004
  Receipt Date: 20190508
  Transmission Date: 20190711
  Serious: Yes (Hospitalization)
  Sender: FDA-Public Use
  Company Number: US-ACTELION-A-NJ2018-179568

PATIENT
  Age: 82 Year
  Sex: Female

DRUGS (11)
  1. CLINDAMYCIN. [Concomitant]
     Active Substance: CLINDAMYCIN
  2. LORATADINE. [Concomitant]
     Active Substance: LORATADINE
  3. METOPROLOL. [Concomitant]
     Active Substance: METOPROLOL
  4. SYNTHROID [Concomitant]
     Active Substance: LEVOTHYROXINE SODIUM
  5. LOPERAMIDE [Concomitant]
     Active Substance: LOPERAMIDE
  6. COUMADIN [Concomitant]
     Active Substance: WARFARIN SODIUM
     Dosage: UNK
  7. PANTOPRAZOLE [Concomitant]
     Active Substance: PANTOPRAZOLE
  8. FERROUS SULFATE. [Concomitant]
     Active Substance: FERROUS SULFATE
  9. OPSUMIT [Suspect]
     Active Substance: MACITENTAN
     Indication: PULMONARY EMBOLISM
     Dosage: 10 MG, QD
     Route: 048
     Dates: start: 20151020
  10. PREDNISONE. [Concomitant]
     Active Substance: PREDNISONE
  11. FLONASE [Concomitant]
     Active Substance: FLUTICASONE PROPIONATE

REACTIONS (22)
  - Fatigue [Recovering/Resolving]
  - Confusional state [Recovered/Resolved]
  - Blood creatinine increased [Unknown]
  - Asthenia [Unknown]
  - Dizziness [Recovered/Resolved]
  - Nausea [Unknown]
  - Haematocrit decreased [Unknown]
  - Brain natriuretic peptide increased [Unknown]
  - Epistaxis [Recovered/Resolved]
  - Diarrhoea [Unknown]
  - Swelling [Unknown]
  - Packed red blood cell transfusion [Unknown]
  - Haemoglobin decreased [Unknown]
  - Iron deficiency anaemia [Unknown]
  - Malaise [Recovering/Resolving]
  - Pulmonary embolism [Recovering/Resolving]
  - Serum ferritin decreased [Unknown]
  - Dyspnoea [Unknown]
  - Anaemia [Unknown]
  - Dyspnoea exertional [Unknown]
  - Pulmonary congestion [Unknown]
  - Red blood cell count decreased [Unknown]

NARRATIVE: CASE EVENT DATE: 201809
